FAERS Safety Report 23334418 (Version 1)
Quarter: 2023Q4

REPORT INFORMATION
  Report Type: Spontaneous
  Country: GB (occurrence: GB)
  Receive Date: 20231224
  Receipt Date: 20231224
  Transmission Date: 20240110
  Serious: Yes (Life-Threatening, Disabling)
  Sender: FDA-Public Use
  Company Number: GB-MHRA-MED-202312111638149940-YKMZG

PATIENT
  Age: 60 Year
  Sex: Male
  Weight: 70 kg

DRUGS (1)
  1. ESCITALOPRAM [Suspect]
     Active Substance: ESCITALOPRAM OXALATE
     Indication: Anxiety
     Dosage: UNK (5 MG ON ALTERNATE DAYS)
     Route: 065
     Dates: start: 20231130

REACTIONS (1)
  - Sleep terror [Recovered/Resolved with Sequelae]

NARRATIVE: CASE EVENT DATE: 20231211
